FAERS Safety Report 5673913-0 (Version None)
Quarter: 2008Q2

REPORT INFORMATION
  Report Type: 
  Country: None (occurrence: None)
  Receive Date: 20080226
  Receipt Date: 20080104
  Transmission Date: 20081010
  Serious: Yes (Death, Hospitalization)
  Sender: FDA-Public Use
  Company Number: US-JNJFOC-20071200327

PATIENT

DRUGS (2)
  1. DECITABINE (DECITABINE) LYOPHILIZED POWDER [Suspect]
     Indication: MYELODYSPLASTIC SYNDROME
     Dosage: 50 MG, 1 IN , INTRAVENOUS
     Route: 042
     Dates: start: 20070801, end: 20071005
  2. VIDAZA [Suspect]
     Indication: MYELODYSPLASTIC SYNDROME
     Dosage: 230 MG, 1 IN , INTRAVENOUS
     Route: 042
     Dates: start: 20061001, end: 20070801

REACTIONS (1)
  - PNEUMOCYSTIS JIROVECI PNEUMONIA [None]
